FAERS Safety Report 4874777-5 (Version None)
Quarter: 2006Q1

REPORT INFORMATION
  Report Type: 
  Country: None (occurrence: None)
  Receive Date: 20060104
  Receipt Date: 20060104
  Transmission Date: 20060701
  Serious: No
  Sender: FDA-Public Use
  Company Number: None

PATIENT
  Age: 47 Year
  Sex: Female
  Weight: 90.7194 kg

DRUGS (4)
  1. SURGILUBE   DK   FOUGERA [Suspect]
     Indication: GYNAECOLOGICAL EXAMINATION
     Dosage: PACKET ONCE VAG; CATHER PACKET ONCE URETHRAL
     Route: 067
     Dates: start: 20040428, end: 20040428
  2. SURGILUBE   DK   FOUGERA [Suspect]
     Indication: SMEAR CERVIX
     Dosage: PACKET ONCE VAG; CATHER PACKET ONCE URETHRAL
     Route: 067
     Dates: start: 20040428, end: 20040428
  3. SURGILUBE   DK   FOUGERA [Suspect]
     Indication: GYNAECOLOGICAL EXAMINATION
     Dosage: PACKET ONCE VAG; CATHER PACKET ONCE URETHRAL
     Route: 067
     Dates: start: 20051006, end: 20051006
  4. SURGILUBE   DK   FOUGERA [Suspect]
     Indication: SMEAR CERVIX
     Dosage: PACKET ONCE VAG; CATHER PACKET ONCE URETHRAL
     Route: 067
     Dates: start: 20051006, end: 20051006

REACTIONS (4)
  - CAUSTIC INJURY [None]
  - DERMATITIS CONTACT [None]
  - DRUG HYPERSENSITIVITY [None]
  - VULVOVAGINAL DISCOMFORT [None]
